FAERS Safety Report 17668993 (Version 1)
Quarter: 2020Q2

REPORT INFORMATION
  Report Type: Spontaneous
  Country: TW (occurrence: TW)
  Receive Date: 20200415
  Receipt Date: 20200415
  Transmission Date: 20200713
  Serious: Yes (Hospitalization, Other)
  Sender: FDA-Public Use
  Company Number: TW-GILEAD-2020-0459030

PATIENT
  Age: 40 Year

DRUGS (1)
  1. EPCLUSA [Suspect]
     Active Substance: SOFOSBUVIR\VELPATASVIR
     Indication: HEPATITIS C
     Route: 065

REACTIONS (1)
  - Oesophageal varices haemorrhage [Unknown]

NARRATIVE: CASE EVENT DATE: 202003
